APPROVED DRUG PRODUCT: NORVIR
Active Ingredient: RITONAVIR
Strength: 100MG **Federal Register determination that product was not discontinued or withdrawn for safety or effectiveness reasons**
Dosage Form/Route: CAPSULE;ORAL
Application: N020945 | Product #001
Applicant: ABBVIE INC
Approved: Jun 29, 1999 | RLD: Yes | RS: No | Type: DISCN